FAERS Safety Report 5547519-8 (Version None)
Quarter: 2007Q4

REPORT INFORMATION
  Report Type: 
  Country: None (occurrence: None)
  Receive Date: 20071126
  Receipt Date: 20070828
  Transmission Date: 20080405
  Serious: Yes (Hospitalization, Other)
  Sender: FDA-Public Use
  Company Number: 2007BH006604

PATIENT
  Sex: Male
  Weight: 68.7199 kg

DRUGS (2)
  1. DIANEAL [Suspect]
     Indication: RENAL FAILURE CHRONIC
     Dosage: IP
     Route: 033
  2. DIANEAL [Suspect]
     Indication: RENAL FAILURE CHRONIC
     Dosage: 2 L; IP
     Route: 033

REACTIONS (3)
  - ASTHENIA [None]
  - CATHETER RELATED INFECTION [None]
  - PERITONITIS BACTERIAL [None]
